FAERS Safety Report 13156344 (Version 2)
Quarter: 2017Q1

REPORT INFORMATION
  Report Type: Spontaneous
  Country: FR (occurrence: FR)
  Receive Date: 20170126
  Receipt Date: 20170210
  Transmission Date: 20170428
  Serious: Yes (Hospitalization)
  Sender: FDA-Public Use
  Company Number: FR-ALLERGAN-1703047US

PATIENT
  Age: 51 Year
  Sex: Female

DRUGS (5)
  1. KETAMINE PANPHARMA [Suspect]
     Active Substance: KETAMINE
     Indication: PAIN
     Dosage: 4 AMPOULES, QD
     Route: 065
  2. LAROXYL [Suspect]
     Active Substance: AMITRIPTYLINE
     Indication: PRODUCT USED FOR UNKNOWN INDICATION
     Dosage: UNK, SINGLE
     Route: 048
     Dates: start: 2016
  3. ESCITALOPRAM OXALATE - BP [Suspect]
     Active Substance: ESCITALOPRAM OXALATE
     Indication: PRODUCT USED FOR UNKNOWN INDICATION
     Dosage: OVERDOSE: 1 BOX (PRESUMED QUANTITY)
     Route: 048
     Dates: start: 2016
  4. LAROXYL [Suspect]
     Active Substance: AMITRIPTYLINE
     Dosage: UNK
     Route: 048
  5. KETAMINE PANPHARMA [Suspect]
     Active Substance: KETAMINE
     Dosage: OVERDOSE: 23 BOXES OF 5 AMPOULES OF 50MG/5ML
     Route: 048
     Dates: start: 2016

REACTIONS (5)
  - Overdose [Unknown]
  - Drug ineffective [Unknown]
  - Coma [Recovered/Resolved]
  - Pneumonia [Recovered/Resolved]
  - Pneumonia aspiration [Recovered/Resolved]

NARRATIVE: CASE EVENT DATE: 2016
